FAERS Safety Report 21244006 (Version 1)
Quarter: 2022Q3

REPORT INFORMATION
  Report Type: Spontaneous
  Country: NL (occurrence: NL)
  Receive Date: 20220823
  Receipt Date: 20220823
  Transmission Date: 20221027
  Serious: Yes (Hospitalization)
  Sender: FDA-Public Use
  Company Number: None

PATIENT
  Age: 26 Year
  Sex: Male
  Weight: 102.4 kg

DRUGS (3)
  1. INFLIXIMAB [Suspect]
     Active Substance: INFLIXIMAB
     Indication: Crohn^s disease
     Dosage: INFUSION POWDER, 500MG, GIVEN 4 X IN TOTAL
     Route: 065
     Dates: start: 20220506
  2. MERCAPTOPURINE [Concomitant]
     Active Substance: MERCAPTOPURINE
     Indication: Product used for unknown indication
     Dosage: 1XDAY 25MG, MERCAPTOPURINE TABLET 50MG (1-WATER) / BRAND NAME NOT SPECIFIED
     Route: 065
  3. SALBUTAMOL AEROSOL 100UG/DO / AEROLIN AUTOHALER AEROSOL 100MCG/DO SPBS [Concomitant]
     Indication: Product used for unknown indication
     Dosage: AEROSOL, 100 (MICROGRAM PER DOSE)
     Route: 065

REACTIONS (1)
  - Myocardial infarction [Recovering/Resolving]

NARRATIVE: CASE EVENT DATE: 20220721
